FAERS Safety Report 6503740-3 (Version None)
Quarter: 2009Q4

REPORT INFORMATION
  Report Type: 
  Country: None (occurrence: None)
  Receive Date: 20091216
  Receipt Date: 20091216
  Transmission Date: 20100525
  Serious: No
  Sender: FDA-Public Use
  Company Number: None

PATIENT
  Age: 67 Year
  Sex: Female
  Weight: 68.0396 kg

DRUGS (1)
  1. LISINOPRIL AND HYDROCHLOROTHIAZIDE [Suspect]
     Indication: BLOOD PRESSURE
     Dosage: 1 X DAY
     Dates: start: 20091019, end: 20091130

REACTIONS (5)
  - BRONCHITIS [None]
  - COUGH [None]
  - MALAISE [None]
  - THROAT IRRITATION [None]
  - VOMITING [None]
